FAERS Safety Report 7659670-7 (Version None)
Quarter: 2011Q3

REPORT INFORMATION
  Report Type: 
  Country: None (occurrence: None)
  Receive Date: 20110805
  Receipt Date: 20110805
  Transmission Date: 20111222
  Serious: Yes (Disabling)
  Sender: FDA-Public Use
  Company Number: NZ-ABBOTT-11P-118-0718693-00

PATIENT
  Sex: Female
  Weight: 60 kg

DRUGS (5)
  1. HUMIRA [Suspect]
     Indication: PSORIASIS
     Dates: start: 20100301
  2. LAMIVUDINE [Concomitant]
     Indication: VIRAL HEPATITIS CARRIER
     Route: 048
  3. HUMIRA [Suspect]
     Dates: end: 20100801
  4. ENBREL [Suspect]
     Indication: PSORIASIS
     Dates: start: 20110311
  5. PROMETHAZINE [Concomitant]
     Indication: PRURITUS
     Route: 048

REACTIONS (5)
  - PRURITUS [None]
  - ANOSMIA [None]
  - DYSGEUSIA [None]
  - LETHARGY [None]
  - NAUSEA [None]
